FAERS Safety Report 11086411 (Version 1)
Quarter: 2015Q2

REPORT INFORMATION
  Report Type: Spontaneous
  Country: CA (occurrence: CA)
  Receive Date: 20150504
  Receipt Date: 20150504
  Transmission Date: 20150821
  Serious: Yes (Death, Hospitalization)
  Sender: FDA-Public Use
  Company Number: CA-ROCHE-1570724

PATIENT
  Age: 61 Year
  Sex: Male

DRUGS (5)
  1. IBAVYR [Suspect]
     Active Substance: RIBAVIRIN
     Indication: HEPATITIS C
     Route: 048
  2. RIBAVIRIN. [Suspect]
     Active Substance: RIBAVIRIN
     Indication: HEPATITIS C
     Dosage: THERAPY DURATION: 2 MONTHS
     Route: 048
  3. PEGASYS [Suspect]
     Active Substance: PEGINTERFERON ALFA-2A
     Indication: HEPATITIS C
     Dosage: THERAPY DURATION: 2 MONTHS
     Route: 058
  4. SOVALDI [Suspect]
     Active Substance: SOFOSBUVIR
     Indication: HEPATITIS C
     Route: 048
  5. PEGINTERFERON ALFA-2B/RIBAVIRIN [Suspect]
     Active Substance: PEGINTERFERON ALFA-2B\RIBAVIRIN
     Indication: HEPATITIS C
     Route: 048

REACTIONS (4)
  - Pyrexia [Fatal]
  - Pneumonia [Fatal]
  - Septic shock [Fatal]
  - Hepatic failure [Fatal]
